FAERS Safety Report 15857918 (Version 2)
Quarter: 2019Q1

REPORT INFORMATION
  Report Type: Spontaneous
  Country: FR (occurrence: FR)
  Receive Date: 20190123
  Receipt Date: 20190204
  Transmission Date: 20190417
  Serious: Yes (Other)
  Sender: FDA-Public Use
  Company Number: FR-PFIZER INC-2019022924

PATIENT
  Age: 66 Year
  Sex: Female

DRUGS (2)
  1. OLMESARTAN [Suspect]
     Active Substance: OLMESARTAN
     Indication: HYPERTENSION
     Dosage: 20 MG, 1X/DAY
     Route: 065
  2. ATORVASTATIN CALCIUM. [Suspect]
     Active Substance: ATORVASTATIN CALCIUM
     Indication: DYSLIPIDAEMIA
     Dosage: 10 MG, 1X/DAY
     Route: 065

REACTIONS (7)
  - Weight decreased [Recovered/Resolved]
  - Microvillous inclusion disease [Recovered/Resolved]
  - Sprue-like enteropathy [Recovered/Resolved]
  - General physical health deterioration [Recovered/Resolved]
  - Abdominal pain [Recovered/Resolved]
  - Malabsorption [Recovered/Resolved]
  - Diarrhoea [Recovered/Resolved]
